FAERS Safety Report 12452856 (Version 1)
Quarter: 2016Q2

REPORT INFORMATION
  Report Type: Spontaneous
  Country: US (occurrence: US)
  Receive Date: 20160609
  Receipt Date: 20160609
  Transmission Date: 20160815
  Serious: No
  Sender: FDA-Public Use
  Company Number: US-MDT-ADR-2016-01049

PATIENT
  Age: 44 Year
  Sex: Female

DRUGS (4)
  1. MORPHINE DRUG [Suspect]
     Active Substance: MORPHINE
     Route: 037
  2. CLONIDINE. [Suspect]
     Active Substance: CLONIDINE
     Route: 037
  3. UNKNOWN DRUG [Suspect]
     Active Substance: UNSPECIFIED INGREDIENT
     Route: 037
  4. BACLOFEN. [Suspect]
     Active Substance: BACLOFEN
     Route: 037

REACTIONS (3)
  - Device issue [None]
  - Device defective [None]
  - Procedural pain [Unknown]

NARRATIVE: CASE EVENT DATE: 20160604
